FAERS Safety Report 9181654 (Version 1)
Quarter: 2013Q1

REPORT INFORMATION
  Report Type: Spontaneous
  Country: FR (occurrence: FR)
  Receive Date: 20130322
  Receipt Date: 20130322
  Transmission Date: 20140127
  Serious: Yes (Hospitalization, Other)
  Sender: FDA-Public Use
  Company Number: FR-MYLANLABS-2013S1005590

PATIENT
  Age: 63 Year
  Sex: Male

DRUGS (4)
  1. VORICONAZOLE [Suspect]
     Indication: FUNGAL SKIN INFECTION
     Route: 048
  2. TACROLIMUS [Interacting]
     Indication: IMMUNOSUPPRESSION
     Route: 065
  3. MYCOPHENOLATE MOFETIL [Suspect]
     Indication: IMMUNOSUPPRESSION
     Dosage: 2 G/DAY
     Route: 065
  4. THYMOGLOBULIN [Suspect]
     Indication: IMMUNOSUPPRESSION
     Route: 065

REACTIONS (5)
  - Renal failure acute [Unknown]
  - Drug interaction [Unknown]
  - Fungal skin infection [Recovered/Resolved]
  - Alternaria infection [Recovered/Resolved]
  - Fungal skin infection [Recovered/Resolved]
